FAERS Safety Report 14182639 (Version 3)
Quarter: 2018Q1

REPORT INFORMATION
  Report Type: Spontaneous
  Country: CA (occurrence: CA)
  Receive Date: 20171113
  Receipt Date: 20180321
  Transmission Date: 20180508
  Serious: Yes (Other)
  Sender: FDA-Public Use
  Company Number: CA-PFIZER INC-2016420005

PATIENT
  Age: 6 Year
  Sex: Female
  Weight: 22.3 kg

DRUGS (7)
  1. GENOTROPIN [Suspect]
     Active Substance: SOMATROPIN
     Dosage: 0.75 MG, 1X/DAY
     Route: 058
     Dates: start: 20160902
  2. GENOTROPIN [Suspect]
     Active Substance: SOMATROPIN
     Dosage: 1 MG, 1X/DAY
     Route: 058
  3. MULTIVITAMIN /00097801/ [Concomitant]
     Active Substance: VITAMINS
     Dosage: ONE OF EACH DAILY FOR A LONG TIME
  4. GENOTROPIN [Suspect]
     Active Substance: SOMATROPIN
     Dosage: 0.8 MG, DAILY
     Dates: start: 20161114
  5. GENOTROPIN [Suspect]
     Active Substance: SOMATROPIN
     Dosage: 0.9 MG, 1X/DAY
     Route: 058
  6. VITAMIN D /00107901/ [Concomitant]
     Active Substance: ERGOCALCIFEROL
     Dosage: UNK
  7. GENOTROPIN [Suspect]
     Active Substance: SOMATROPIN
     Indication: TURNER^S SYNDROME
     Dosage: 0.80 MG, 1X/DAY
     Route: 058

REACTIONS (12)
  - Drug prescribing error [Recovered/Resolved]
  - Tonsillitis [Recovering/Resolving]
  - Diarrhoea [Recovered/Resolved]
  - Asthenia [Recovered/Resolved]
  - Condition aggravated [Unknown]
  - Attention deficit/hyperactivity disorder [Recovered/Resolved]
  - Ear infection [Unknown]
  - Respiratory tract infection [Recovered/Resolved]
  - Sleep apnoea syndrome [Unknown]
  - Urinary tract infection [Recovered/Resolved]
  - Pharyngitis [Unknown]
  - Condition aggravated [Recovered/Resolved]

NARRATIVE: CASE EVENT DATE: 20160910
